FAERS Safety Report 20437407 (Version 1)
Quarter: 2022Q1

REPORT INFORMATION
  Report Type: Spontaneous
  Country: US (occurrence: US)
  Receive Date: 20220207
  Receipt Date: 20220207
  Transmission Date: 20220423
  Serious: Yes (Other)
  Sender: FDA-Public Use
  Company Number: US-MSNLABS-2022MSNSPO00062

PATIENT

DRUGS (2)
  1. CAPECITABINE [Suspect]
     Active Substance: CAPECITABINE
     Indication: Breast cancer
     Dosage: 14 DAYS ON 07 DAYS OFF
     Route: 065
     Dates: start: 202106
  2. CAPECITABINE [Suspect]
     Active Substance: CAPECITABINE
     Indication: Brain neoplasm malignant

REACTIONS (2)
  - Drug ineffective [Unknown]
  - Neoplasm progression [Unknown]

NARRATIVE: CASE EVENT DATE: 20211229
